FAERS Safety Report 24414986 (Version 4)
Quarter: 2025Q3

REPORT INFORMATION
  Report Type: Report from Study
  Country: VA (occurrence: VA)
  Receive Date: 20241009
  Receipt Date: 20250929
  Transmission Date: 20251021
  Serious: Yes (Hospitalization)
  Sender: Unknown Manufacturer
  Company Number: VA-MIRUM PHARMACEUTICALS, INC.-VA-MIR-24-00883

PATIENT

DRUGS (7)
  1. MARALIXIBAT CHLORIDE [Suspect]
     Active Substance: MARALIXIBAT CHLORIDE
     Indication: Alagille syndrome
     Dosage: 200 MICROGRAM/KILOGRAM, QD
     Route: 048
     Dates: start: 20231024, end: 20240313
  2. MARALIXIBAT CHLORIDE [Suspect]
     Active Substance: MARALIXIBAT CHLORIDE
     Indication: Pruritus
  3. CALCIFEDIOL [Concomitant]
     Active Substance: CALCIFEDIOL
     Indication: Vitamin D deficiency
     Dosage: 1000 INTERNATIONAL UNIT, DIE PER OS
     Route: 048
  4. CETIRIZINE [Concomitant]
     Active Substance: CETIRIZINE HYDROCHLORIDE
     Indication: Pruritus
     Dosage: 3 MILLIGRAM, DIE PER OS
     Route: 048
  5. URSODIOL [Concomitant]
     Active Substance: URSODIOL
     Indication: Cholestasis
     Dosage: 150 MILLIGRAM, BID PER OS
     Route: 048
  6. RIFAMPIN [Concomitant]
     Active Substance: RIFAMPIN
     Indication: Pruritus
     Dosage: 60 MILLIGRAM, BID PER OS
     Route: 048
  7. PHYTONADIONE [Concomitant]
     Active Substance: PHYTONADIONE
     Indication: Vitamin K deficiency
     Dosage: 10 MILLIGRAM, WEEKLY PER OS
     Route: 048

REACTIONS (1)
  - Liver transplant [Unknown]

NARRATIVE: CASE EVENT DATE: 20240313
